FAERS Safety Report 4890669-X (Version None)
Quarter: 2006Q1

REPORT INFORMATION
  Report Type: 
  Country: None (occurrence: None)
  Receive Date: 20060123
  Receipt Date: 20060112
  Transmission Date: 20060701
  Serious: Yes (Hospitalization)
  Sender: FDA-Public Use
  Company Number: 230215K06USA

PATIENT
  Age: 42 Year
  Sex: Male

DRUGS (1)
  1. REBIF [Suspect]
     Indication: MULTIPLE SCLEROSIS
     Dosage: 8.8 MCG
     Dates: start: 20060105, end: 20060101

REACTIONS (3)
  - BLADDER INJURY [None]
  - FLANK PAIN [None]
  - NEPHROLITHIASIS [None]
